FAERS Safety Report 8021446-9 (Version None)
Quarter: 2012Q1

REPORT INFORMATION
  Report Type: 
  Country: None (occurrence: None)
  Receive Date: 20120104
  Receipt Date: 20111227
  Transmission Date: 20120608
  Serious: Yes (Hospitalization, Other)
  Sender: FDA-Public Use
  Company Number: US-BAYER-2011-073411

PATIENT
  Age: 22 Year
  Sex: Female
  Weight: 90.703 kg

DRUGS (4)
  1. PENICILLIN VK [Concomitant]
     Dosage: 500 MG, UNK
     Route: 048
     Dates: start: 20090730, end: 20090811
  2. HYDROCODONE BITARTRATE AND ACETAMINOPHEN [Concomitant]
     Dosage: 500 MG, UNK
     Dates: start: 20090811
  3. ADVIL PM [Concomitant]
     Dosage: UNK
     Dates: start: 20090201
  4. YAZ [Suspect]
     Indication: CONTRACEPTION
     Dosage: UNK
     Dates: start: 20080101, end: 20090101

REACTIONS (3)
  - BILIARY COLIC [None]
  - PAIN [None]
  - CHOLECYSTITIS CHRONIC [None]
